FAERS Safety Report 6208362-X (Version None)
Quarter: 2009Q2

REPORT INFORMATION
  Report Type: 
  Country: None (occurrence: None)
  Receive Date: 20090529
  Receipt Date: 20090522
  Transmission Date: 20091009
  Serious: Yes (Hospitalization)
  Sender: FDA-Public Use
  Company Number: US-BIOGENIDEC-2009BI006129

PATIENT
  Age: 36 Year
  Sex: Female

DRUGS (3)
  1. AVONEX [Suspect]
     Indication: MULTIPLE SCLEROSIS
     Route: 030
     Dates: start: 20010225, end: 20011231
  2. AVONEX [Suspect]
     Route: 030
     Dates: start: 20030401, end: 20030630
  3. AVONEX [Suspect]
     Route: 030
     Dates: start: 20030701, end: 20030831

REACTIONS (1)
  - NO ADVERSE EVENT [None]
